FAERS Safety Report 8102947-1 (Version None)
Quarter: 2012Q1

REPORT INFORMATION
  Report Type: 
  Country: None (occurrence: None)
  Receive Date: 20120127
  Receipt Date: 20120116
  Transmission Date: 20120608
  Serious: Yes (Death)
  Sender: FDA-Public Use
  Company Number: 2012POI057500038

PATIENT
  Age: 52 Year
  Sex: Female

DRUGS (10)
  1. ZOLPIDEM [Suspect]
     Dosage: PER ORAL
     Route: 048
     Dates: end: 20100101
  2. TRAZODONE HCL [Suspect]
     Dosage: PER ORAL
     Route: 048
     Dates: end: 20100101
  3. LORAZEPAM [Suspect]
     Dosage: PER ORAL
     Route: 048
     Dates: end: 20100101
  4. FLUOXETINE [Suspect]
     Dosage: PER ORAL
     Route: 048
     Dates: end: 20100101
  5. TEMAZEPAM [Suspect]
     Dosage: PER ORAL
     Route: 048
     Dates: end: 20100101
  6. MORPHINE SULFATE [Suspect]
     Dosage: PER ORAL
     Route: 048
     Dates: end: 20100101
  7. OLANZAPINE [Suspect]
     Dosage: PER ORAL
     Route: 048
     Dates: end: 20100101
  8. SERTRALINE HYDROCHLORIDE [Suspect]
     Dosage: PER ORAL
     Route: 048
     Dates: end: 20100101
  9. OXCARBAZEPINE [Suspect]
     Dosage: PER ORAL
     Route: 048
     Dates: end: 20100101
  10. CLONAZEPAM [Suspect]
     Dosage: PER ORAL
     Route: 048
     Dates: end: 20100101

REACTIONS (3)
  - CARDIAC ARREST [None]
  - COMPLETED SUICIDE [None]
  - RESPIRATORY ARREST [None]
